FAERS Safety Report 21976901 (Version 1)
Quarter: 2023Q1

REPORT INFORMATION
  Report Type: Spontaneous
  Country: US (occurrence: US)
  Receive Date: 20230210
  Receipt Date: 20230210
  Transmission Date: 20230418
  Serious: Yes (Other)
  Sender: FDA-Public Use
  Company Number: US-RECKITT BENCKISER HEALTHCARE INT LIMITED-RB-084751-2023

PATIENT
  Age: 43 Year
  Sex: Female

DRUGS (1)
  1. OXYCODONE HYDROCHLORIDE\OXYCODONE TEREPHTHALATE [Suspect]
     Active Substance: OXYCODONE HYDROCHLORIDE\OXYCODONE TEREPHTHALATE
     Indication: Nasal congestion
     Dosage: UNK
     Route: 065

REACTIONS (4)
  - Ischaemia [Unknown]
  - Skin discolouration [Recovering/Resolving]
  - Pain [Recovered/Resolved]
  - Pain [Recovered/Resolved]
